FAERS Safety Report 16799043 (Version 1)
Quarter: 2019Q3

REPORT INFORMATION
  Report Type: Spontaneous
  Country: GB (occurrence: SE)
  Receive Date: 20190912
  Receipt Date: 20190912
  Transmission Date: 20191005
  Serious: Yes (Hospitalization, Disabling)
  Sender: FDA-Public Use
  Company Number: SE-BAYER-2019-165907

PATIENT
  Age: 34 Year
  Sex: Female
  Weight: 51 kg

DRUGS (1)
  1. KYLEENA [Suspect]
     Active Substance: LEVONORGESTREL
     Indication: CONTRACEPTION
     Dosage: 17.5 MCG/24HR, CONT
     Route: 015

REACTIONS (6)
  - Ectopic pregnancy with contraceptive device [None]
  - Intra-abdominal haemorrhage [None]
  - Abdominal pain [None]
  - Dizziness [None]
  - Cold sweat [None]
  - Drug ineffective [None]

NARRATIVE: CASE EVENT DATE: 20190826
